FAERS Safety Report 20317472 (Version 2)
Quarter: 2022Q1

REPORT INFORMATION
  Report Type: Report from Study
  Country: MX (occurrence: MX)
  Receive Date: 20220110
  Receipt Date: 20220127
  Transmission Date: 20220423
  Serious: Yes (Hospitalization, Other)
  Sender: FDA-Public Use
  Company Number: MX-NOVARTISPH-NVSC2022MX003626

PATIENT
  Sex: Male
  Weight: 75 kg

DRUGS (5)
  1. ENTRESTO [Suspect]
     Active Substance: SACUBITRIL\VALSARTAN
     Indication: Hypertension
     Dosage: 1 DOSAGE FORM, BID (50 MG)
     Route: 048
     Dates: start: 2016, end: 20211203
  2. ENTRESTO [Suspect]
     Active Substance: SACUBITRIL\VALSARTAN
     Dosage: 1 DOSAGE FORM, QD  (50 MG)
     Route: 048
     Dates: start: 20211204
  3. AVODART [Concomitant]
     Active Substance: DUTASTERIDE
     Indication: Prostate cancer
     Dosage: 1 DOSAGE FORM, Q24H (START DATE:MORE THAN 5 YEARS AGO (DOES NOT KNOW EXACT DATE))
     Route: 048
  4. VYTORIN [Concomitant]
     Active Substance: EZETIMIBE\SIMVASTATIN
     Indication: Hypercholesterolaemia
     Dosage: 1 DOSAGE FORM, Q24H (START DATE:MORE THAN 5 YEARS AGO (DOES NOT KNOW EXACT DATE))
     Route: 048
  5. DIGOXIN [Concomitant]
     Active Substance: DIGOXIN
     Indication: Cardiac disorder
     Dosage: 0.25 DOSAGE FORM, QD (START:MORE THAN 5 YEARS AGO (DOES NOT KNOW EXACT DATE))
     Route: 048

REACTIONS (4)
  - Hip fracture [Recovered/Resolved]
  - Fall [Recovered/Resolved]
  - Dizziness [Recovered/Resolved]
  - Product use in unapproved indication [Unknown]

NARRATIVE: CASE EVENT DATE: 20160101
